FAERS Safety Report 14619892 (Version 2)
Quarter: 2018Q2

REPORT INFORMATION
  Report Type: Spontaneous
  Country: JP (occurrence: JP)
  Receive Date: 20180309
  Receipt Date: 20180413
  Transmission Date: 20180711
  Serious: Yes (Hospitalization)
  Sender: FDA-Public Use
  Company Number: JP-PFIZER INC-2018092244

PATIENT
  Age: 82 Year
  Sex: Male
  Weight: 51.8 kg

DRUGS (19)
  1. HANP [Concomitant]
     Active Substance: CARPERITIDE
     Dosage: CONTINUOUS DOSE OF 2 ML/HR (2000 UG /50 ML WITH 5% GLUCOSE SOLUTION)
     Route: 041
     Dates: start: 20180122, end: 20180124
  2. ZOVIRAX [Concomitant]
     Active Substance: ACYCLOVIR
     Dosage: 200 MG, 1X/DAY (AFTER DINNER)
     Route: 048
  3. FEBURIC [Concomitant]
     Active Substance: FEBUXOSTAT
     Dosage: 30 MG, DAILY (1 AND A HALF TABLET)
     Route: 048
     Dates: start: 20180131
  4. BENIDIPINE [Concomitant]
     Active Substance: BENIDIPINE
     Dosage: 4 MG, 2X/DAY (AFTER BREAKFAST AND DINNER)
     Route: 048
  5. OLMESARTAN [Suspect]
     Active Substance: OLMESARTAN
     Indication: HYPERTENSION
     Dosage: 10 MG, 1X/DAY
     Route: 048
     Dates: start: 20180125, end: 20180203
  6. TEPRENONE [Concomitant]
     Active Substance: TEPRENONE
     Dosage: 50 MG, 2X/DAY (AFTER BREAKFAST AND DINNER)
     Route: 048
  7. FENELMIN [Concomitant]
     Dosage: 50 MG, 2X/DAY (AFTER BREAKFAST AND DINNER)
     Route: 048
  8. DIGILANOGEN [Concomitant]
     Dosage: 0.4 MG, UNK (WITH NORMAL SALINE 20ML)
     Route: 042
     Dates: start: 20180122, end: 20180122
  9. UNASYN [Suspect]
     Active Substance: AMPICILLIN SODIUM\SULBACTAM SODIUM
     Indication: PNEUMONIA
     Dosage: 6 G, 1X/DAY, (3 G X 2)
     Route: 042
     Dates: start: 20180122, end: 20180127
  10. LANDEL [Concomitant]
     Active Substance: UNSPECIFIED INGREDIENT
     Dosage: 20 MG, 1X/DAY (AFTER BREAKFAST)
     Route: 048
     Dates: end: 20180124
  11. DAIPHEN [Concomitant]
     Active Substance: SULFAMETHOXAZOLE\TRIMETHOPRIM
     Dosage: 1 DF, 1X/DAY (AFTER DINNER)
     Route: 048
  12. LANSOPRAZOLE. [Concomitant]
     Active Substance: LANSOPRAZOLE
     Dosage: 15 MG, 1X/DAY (AFTER BREAKFAST)
     Route: 048
  13. FENELMIN [Concomitant]
     Dosage: 50 MG, 2X/DAY (AFTER BREAKFAST AND DINNER)
     Route: 048
     Dates: start: 20180122
  14. SAMSCA [Concomitant]
     Active Substance: TOLVAPTAN
     Dosage: 3.75 MG, 1X/DAY (AFTER BREAKFAST)
     Route: 065
     Dates: start: 20180123
  15. NORMAL SALINE [Concomitant]
     Active Substance: SODIUM CHLORIDE
     Dosage: UNK
     Route: 042
     Dates: start: 20180122, end: 20180122
  16. FEBURIC [Concomitant]
     Active Substance: FEBUXOSTAT
     Dosage: 20 MG, 1X/DAY(AFTER BREAKFAST)
     Route: 048
  17. WARFARIN K [Concomitant]
     Active Substance: WARFARIN POTASSIUM
     Dosage: 2.75 MG, DAILY (1.75 AFTER BREAKFAST AND 1 MG AFTER DINNER)
     Route: 048
  18. LANIRAPID [Suspect]
     Active Substance: METILDIGOXIN
     Indication: CARDIAC FAILURE CONGESTIVE
     Dosage: 3 G, 2X/DAY
     Route: 048
     Dates: start: 20180125, end: 20180202
  19. AZOSEMIDE [Concomitant]
     Active Substance: AZOSEMIDE
     Dosage: 30 MG, 1X/DAY (AFTER BREAKFAST)
     Route: 048

REACTIONS (2)
  - Erythema multiforme [Recovering/Resolving]
  - Drug eruption [Recovering/Resolving]

NARRATIVE: CASE EVENT DATE: 20180130
